FAERS Safety Report 7514309-6 (Version None)
Quarter: 2011Q2

REPORT INFORMATION
  Report Type: 
  Country: None (occurrence: None)
  Receive Date: 20110601
  Receipt Date: 20090828
  Transmission Date: 20111010
  Serious: No
  Sender: FDA-Public Use
  Company Number: US-BIOGENIDEC-2009BI027582

PATIENT
  Age: 46 Year
  Sex: Female

DRUGS (2)
  1. TYSABRI [Suspect]
     Indication: MULTIPLE SCLEROSIS
     Route: 042
     Dates: start: 20090512, end: 20090804
  2. TYSABRI [Suspect]
     Route: 042
     Dates: start: 20110125

REACTIONS (8)
  - HYPERACUSIS [None]
  - GAIT DISTURBANCE [None]
  - COORDINATION ABNORMAL [None]
  - INFUSION SITE PAIN [None]
  - VEIN DISORDER [None]
  - POOR VENOUS ACCESS [None]
  - DRUG INEFFECTIVE [None]
  - FEELING COLD [None]
